FAERS Safety Report 14364173 (Version 4)
Quarter: 2020Q1

REPORT INFORMATION
  Report Type: Spontaneous
  Country: US (occurrence: US)
  Receive Date: 20180108
  Receipt Date: 20200106
  Transmission Date: 20200409
  Serious: Yes (Hospitalization)
  Sender: FDA-Public Use
  Company Number: US-PFIZER INC-2018004489

PATIENT
  Age: 2 Year
  Sex: Male
  Weight: 15 kg

DRUGS (9)
  1. RANITIDINE. [Concomitant]
     Active Substance: RANITIDINE
     Dosage: 22.5 MG, 2X/DAY
     Route: 048
  2. RAPAMUNE [Suspect]
     Active Substance: SIROLIMUS
     Indication: VASCULAR NEOPLASM
     Dosage: UNK
     Dates: start: 20171215
  3. RAPAMUNE [Suspect]
     Active Substance: SIROLIMUS
     Dosage: 0.8 MG/ML, 2X/DAY
     Route: 048
  4. PROPRANOLOL [Concomitant]
     Active Substance: PROPRANOLOL HYDROCHLORIDE
     Indication: VASCULAR NEOPLASM
     Dosage: 20 MG, 2X/DAY
     Route: 048
  5. GABAPENTIN. [Concomitant]
     Active Substance: GABAPENTIN
     Indication: PAIN
     Dosage: 75 MG, 2X/DAY
     Route: 048
  6. SEPTRA [Concomitant]
     Active Substance: SULFAMETHOXAZOLE\TRIMETHOPRIM
     Dosage: 5 ML, 2X/DAY (ONLY ON SATURDAY AND SUNDAY)
     Route: 048
  7. RAPAMUNE [Suspect]
     Active Substance: SIROLIMUS
     Indication: ANGIOSARCOMA
     Dosage: UNK
     Dates: end: 20170815
  8. RAPAMUNE [Suspect]
     Active Substance: SIROLIMUS
     Dosage: 0.5 ML, 2X/DAY
     Route: 048
  9. PREDNISOLONE. [Concomitant]
     Active Substance: PREDNISOLONE
     Indication: VASCULAR NEOPLASM
     Dosage: 15 MG, 2X/DAY
     Route: 048
     Dates: start: 20171227

REACTIONS (3)
  - Product use in unapproved indication [Unknown]
  - Product use issue [Unknown]
  - Neoplasm recurrence [Unknown]
